FAERS Safety Report 23074573 (Version 7)
Quarter: 2025Q1

REPORT INFORMATION
  Report Type: Spontaneous
  Country: KR (occurrence: KR)
  Receive Date: 20231017
  Receipt Date: 20250131
  Transmission Date: 20250409
  Serious: Yes (Hospitalization, Other)
  Sender: ACCORD
  Company Number: KR-Accord-384927

PATIENT
  Age: 69 Year
  Sex: Male
  Weight: 62.8 kg

DRUGS (27)
  1. CARBOPLATIN [Suspect]
     Active Substance: CARBOPLATIN
     Indication: Non-small cell lung cancer metastatic
     Route: 042
     Dates: start: 20230914
  2. PACLITAXEL [Suspect]
     Active Substance: PACLITAXEL
     Indication: Non-small cell lung cancer metastatic
     Route: 042
     Dates: start: 20230914
  3. PEMBROLIZUMAB [Concomitant]
     Active Substance: PEMBROLIZUMAB
     Indication: Non-small cell lung cancer metastatic
     Route: 042
     Dates: start: 20230914
  4. APREPITANT [Concomitant]
     Active Substance: APREPITANT
     Dates: start: 20230914
  5. CHLORPHENIRAMINE [Concomitant]
     Active Substance: CHLORPHENIRAMINE
     Dates: start: 20230914
  6. DEXAMETHASONE [Concomitant]
     Active Substance: DEXAMETHASONE
     Dates: start: 20230914
  7. FAMOTIDINE [Concomitant]
     Active Substance: FAMOTIDINE
     Dates: start: 20230914
  8. RAMOSETRON HYDROCHLORIDE [Concomitant]
     Active Substance: RAMOSETRON HYDROCHLORIDE
     Dates: start: 20230914
  9. DIMETHICONE\PANCRELIPASE\URSODIOL [Concomitant]
     Active Substance: DIMETHICONE\PANCRELIPASE\URSODIOL
     Dates: start: 20230920
  10. NALOXONE HYDROCHLORIDE\OXYCODONE HYDROCHLORIDE [Concomitant]
     Active Substance: NALOXONE HYDROCHLORIDE\OXYCODONE HYDROCHLORIDE
     Dates: start: 20230322
  11. PREDNISOLONE [Concomitant]
     Active Substance: PREDNISOLONE
     Dates: start: 20230926, end: 20231005
  12. LEVOCETIRIZINE [Concomitant]
     Active Substance: LEVOCETIRIZINE
     Dates: start: 20230926, end: 20231009
  13. CHLORPHENIRAMINE [Concomitant]
     Active Substance: CHLORPHENIRAMINE
     Dates: start: 20230926, end: 20231009
  14. ALMAGEL [Concomitant]
     Dates: start: 20230927, end: 20230928
  15. FILGRASTIM [Concomitant]
     Active Substance: FILGRASTIM
     Dates: start: 20230927, end: 20230928
  16. MIRTAZAPINE [Concomitant]
     Active Substance: MIRTAZAPINE
     Dates: start: 2022
  17. ZOLPIDEM [Concomitant]
     Active Substance: ZOLPIDEM TARTRATE
     Dates: start: 2022
  18. LORAZEPAM [Concomitant]
     Active Substance: LORAZEPAM
     Dates: start: 2022
  19. TRAZODONE [Concomitant]
     Active Substance: TRAZODONE HYDROCHLORIDE
     Dates: start: 2022
  20. LINAGLIPTIN [Concomitant]
     Active Substance: LINAGLIPTIN
     Dates: start: 2015
  21. PIOGLITAZONE [Concomitant]
     Active Substance: PIOGLITAZONE
     Dates: start: 2015
  22. AMMONIUM CHLORIDE\CHLORPHENIRAMINE\SODIUM CITRATE [Concomitant]
     Active Substance: AMMONIUM CHLORIDE\CHLORPHENIRAMINE\SODIUM CITRATE
     Dates: start: 2022
  23. CODEINE [Concomitant]
     Active Substance: CODEINE
     Dates: start: 2022
  24. AMBROXOL [Concomitant]
     Active Substance: AMBROXOL
     Dates: start: 2022
  25. METFORMIN [Concomitant]
     Active Substance: METFORMIN HYDROCHLORIDE
     Dates: start: 2015
  26. ATORVASTATIN [Concomitant]
     Active Substance: ATORVASTATIN
     Dates: start: 2022
  27. FAMOTIDINE [Concomitant]
     Active Substance: FAMOTIDINE
     Dates: start: 20230926, end: 20231009

REACTIONS (5)
  - Pyrexia [Recovered/Resolved]
  - Myalgia [Unknown]
  - Decreased appetite [Unknown]
  - Rash [Recovered/Resolved]
  - Diarrhoea [Recovered/Resolved]

NARRATIVE: CASE EVENT DATE: 20230901
